FAERS Safety Report 7919785-2 (Version None)
Quarter: 2011Q4

REPORT INFORMATION
  Report Type: 
  Country: None (occurrence: None)
  Receive Date: 20111117
  Receipt Date: 20111117
  Transmission Date: 20120403
  Serious: Yes (Disabling)
  Sender: FDA-Public Use
  Company Number: None

PATIENT
  Age: 35 Year
  Sex: Female
  Weight: 62.142 kg

DRUGS (1)
  1. MIRENA [Suspect]
     Indication: CONTRACEPTION
     Dosage: 1
     Route: 019
     Dates: start: 20090630, end: 20111116

REACTIONS (2)
  - UTERINE PERFORATION [None]
  - MEDICAL DEVICE COMPLICATION [None]
